FAERS Safety Report 8885916 (Version 1)
Quarter: 2012Q4

REPORT INFORMATION
  Report Type: Report from Study
  Country: US (occurrence: US)
  Receive Date: 20121105
  Receipt Date: 20121105
  Transmission Date: 20130627
  Serious: Yes (Hospitalization)
  Sender: FDA-Public Use
  Company Number: PHHO2010US17775

PATIENT
  Age: 69 Year
  Sex: Male
  Weight: 84.5 kg

DRUGS (16)
  1. ALISKIREN [Suspect]
     Indication: CARDIAC FAILURE
     Route: 048
     Dates: start: 20100811, end: 20101110
  2. FLONAX [Concomitant]
  3. CARVEDILOL [Concomitant]
  4. ADVAIR DISKUS [Concomitant]
  5. SINGULAIR [Concomitant]
  6. COUMADIN [Concomitant]
  7. CYMBALTA [Concomitant]
  8. HYDROCODONE [Concomitant]
  9. PROTONIX [Concomitant]
  10. PACERONE [Concomitant]
  11. VITAMIN B1 [Concomitant]
  12. FENTANYL [Concomitant]
  13. GABAPENTIN [Concomitant]
  14. VITAMIN C [Concomitant]
  15. DOXYCYCLINE [Concomitant]
  16. LASIX [Concomitant]

REACTIONS (1)
  - Pain in extremity [Unknown]
